FAERS Safety Report 12337439 (Version 1)
Quarter: 2016Q2

REPORT INFORMATION
  Report Type: Spontaneous
  Country: FR (occurrence: FR)
  Receive Date: 20160505
  Receipt Date: 20160505
  Transmission Date: 20160815
  Serious: Yes (Other)
  Sender: FDA-Public Use
  Company Number: FR-PFIZER INC-2016237575

PATIENT
  Age: 66 Year
  Sex: Female

DRUGS (13)
  1. PRODILANTIN [Suspect]
     Active Substance: FOSPHENYTOIN SODIUM
     Dosage: 1000 MG, UNK
     Route: 041
     Dates: start: 20150620, end: 20150620
  2. DI-HYDAN [Suspect]
     Active Substance: PHENYTOIN
     Dosage: 200 MG, DAILY
     Route: 048
     Dates: start: 20150624, end: 20150626
  3. METHYLPREDNISOLONE. [Concomitant]
     Active Substance: METHYLPREDNISOLONE
  4. LEVOTHYROX [Concomitant]
     Active Substance: LEVOTHYROXINE
  5. PARACETAMOL [Concomitant]
     Active Substance: ACETAMINOPHEN
  6. PRODILANTIN [Suspect]
     Active Substance: FOSPHENYTOIN SODIUM
     Dosage: 375 MG, 2X/DAY
     Route: 041
     Dates: start: 20150621, end: 20150622
  7. PRODILANTIN [Suspect]
     Active Substance: FOSPHENYTOIN SODIUM
     Dosage: 375 MG, 1X/DAY
     Route: 041
     Dates: start: 20150623, end: 20150625
  8. DI-HYDAN [Suspect]
     Active Substance: PHENYTOIN
     Dosage: 200 MG, 3X/DAY
     Route: 048
     Dates: start: 20150620, end: 20150621
  9. PRODILANTIN [Suspect]
     Active Substance: FOSPHENYTOIN SODIUM
     Dosage: 1100 MG (1ST DOSE) + 400 MG (2ND DOSE), UNK
     Route: 041
     Dates: start: 20150619, end: 20150619
  10. DI-HYDAN [Suspect]
     Active Substance: PHENYTOIN
     Dosage: 100 MG, 3X/DAY
     Route: 048
     Dates: start: 20150619, end: 20150619
  11. FRAGMINE [Concomitant]
     Active Substance: DALTEPARIN SODIUM
  12. KEPPRA [Concomitant]
     Active Substance: LEVETIRACETAM
     Dosage: UNK
     Dates: start: 20150620, end: 20150622
  13. RIVOTRIL [Concomitant]
     Active Substance: CLONAZEPAM
     Dosage: UNK
     Dates: start: 20150619

REACTIONS (6)
  - Nervous system disorder [Recovered/Resolved]
  - Agitation [Recovered/Resolved]
  - Drug level increased [Recovered/Resolved]
  - Dyskinesia [Recovered/Resolved]
  - Nystagmus [Unknown]
  - Somnolence [Recovered/Resolved]

NARRATIVE: CASE EVENT DATE: 201506
